FAERS Safety Report 21521345 (Version 2)
Quarter: 2024Q4

REPORT INFORMATION
  Report Type: Spontaneous
  Country: US (occurrence: US)
  Receive Date: 20221028
  Receipt Date: 20241031
  Transmission Date: 20250115
  Serious: Yes (Life-Threatening, Hospitalization, Other)
  Sender: Kenvue
  Company Number: None

PATIENT
  Age: 15 Year
  Sex: Male

DRUGS (2)
  1. DIPHENHYDRAMINE HYDROCHLORIDE [Suspect]
     Active Substance: DIPHENHYDRAMINE HYDROCHLORIDE
     Indication: Product used for unknown indication
     Route: 065
  2. IBUPROFEN [Suspect]
     Active Substance: IBUPROFEN
     Indication: Product used for unknown indication
     Route: 065

REACTIONS (18)
  - Suicide attempt [Unknown]
  - Multiple organ dysfunction syndrome [Recovered/Resolved]
  - Coma [Recovered/Resolved]
  - Metabolic acidosis [Recovered/Resolved]
  - Polyuria [Recovered/Resolved]
  - Hypoglycaemia [Recovered/Resolved]
  - Cardiac arrest [Recovered/Resolved]
  - Hyperglycaemia [Recovered/Resolved]
  - Shock [Recovered/Resolved]
  - Acute kidney injury [Recovered/Resolved]
  - Aspartate aminotransferase increased [Recovered/Resolved]
  - Alanine aminotransferase increased [Recovered/Resolved]
  - Blood creatine phosphokinase increased [Recovered/Resolved]
  - Deep vein thrombosis [Recovered/Resolved]
  - Nodal arrhythmia [Recovered/Resolved]
  - Cerebral haemorrhage [Recovered/Resolved]
  - Pneumonia necrotising [Recovered/Resolved]
  - Intentional overdose [Unknown]
